FAERS Safety Report 10510035 (Version 1)
Quarter: 2014Q4

REPORT INFORMATION
  Report Type: Spontaneous
  Country: US (occurrence: None)
  Receive Date: 20141009
  Receipt Date: 20141009
  Transmission Date: 20150528
  Serious: Yes (Other)
  Sender: FDA-Public Use
  Company Number: None

PATIENT
  Sex: Female

DRUGS (1)
  1. TOLTERODINE [Suspect]
     Active Substance: TOLTERODINE
     Indication: CAUDA EQUINA SYNDROME
     Route: 048
     Dates: start: 20140908, end: 20141006

REACTIONS (1)
  - Vulvovaginal discomfort [None]
